FAERS Safety Report 6968456-8 (Version None)
Quarter: 2010Q3

REPORT INFORMATION
  Report Type: 
  Country: None (occurrence: None)
  Receive Date: 20100907
  Receipt Date: 20100825
  Transmission Date: 20110219
  Serious: Yes (Hospitalization)
  Sender: FDA-Public Use
  Company Number: PHHY2010US56096

PATIENT
  Age: 65 Year
  Sex: Male

DRUGS (5)
  1. CYCLOSPORINE [Suspect]
     Indication: LUNG TRANSPLANT
     Dosage: 150 MG, BID
  2. AZATHIOPRINE [Suspect]
     Indication: LUNG TRANSPLANT
     Dosage: 100 MG/DAY
  3. PREDNISONE [Suspect]
     Indication: LUNG TRANSPLANT
     Dosage: 10 MG/DAY
  4. ACYCLOVIR SODIUM [Concomitant]
     Indication: LUNG TRANSPLANT
     Dosage: 200 MG, BID
  5. AZITHROMYCIN [Concomitant]
     Indication: LUNG TRANSPLANT
     Dosage: 250 MG, TIW

REACTIONS (12)
  - COUGH [None]
  - DYSPNOEA [None]
  - HYPERCAPNIA [None]
  - HYPOVENTILATION [None]
  - LUNG TRANSPLANT REJECTION [None]
  - MECHANICAL VENTILATION [None]
  - METABOLIC ALKALOSIS [None]
  - NEPHROPATHY TOXIC [None]
  - OBLITERATIVE BRONCHIOLITIS [None]
  - PNEUMONIA VIRAL [None]
  - RESPIRATORY ACIDOSIS [None]
  - RESPIRATORY ALKALOSIS [None]
